FAERS Safety Report 5104402-X (Version None)
Quarter: 2006Q3

REPORT INFORMATION
  Report Type: 
  Country: None (occurrence: None)
  Receive Date: 20060914
  Receipt Date: 20060822
  Transmission Date: 20061208
  Serious: Yes (Hospitalization)
  Sender: FDA-Public Use
  Company Number: GBWYE762523AUG06

PATIENT
  Sex: Male
  Weight: 67 kg

DRUGS (6)
  1. ENBREL [Suspect]
     Indication: JUVENILE ARTHRITIS
     Route: 058
     Dates: start: 20051001, end: 20060427
  2. NAPROXEN [Concomitant]
     Indication: ARTHRITIS
     Route: 048
     Dates: start: 19941201
  3. FOLIC ACID [Concomitant]
     Dosage: UNKNOWN
  4. DIGOXIN [Concomitant]
     Dosage: UNKNOWN
  5. SOLPADOL [Concomitant]
     Indication: ANALGESIC EFFECT
     Dosage: 2 TABLETS AS REQUIRED
     Route: 048
     Dates: start: 20001201
  6. OMEPRAZOLE [Concomitant]
     Dosage: UNKNOWN

REACTIONS (1)
  - SEPTIC ARTHRITIS STAPHYLOCOCCAL [None]
